FAERS Safety Report 9464203 (Version 1)
Quarter: 2013Q3

REPORT INFORMATION
  Report Type: Spontaneous
  Country: CA (occurrence: CA)
  Receive Date: 20130819
  Receipt Date: 20130819
  Transmission Date: 20140515
  Serious: Yes (Other)
  Sender: FDA-Public Use
  Company Number: CA-ROCHE-1263154

PATIENT
  Age: 46 Year
  Sex: Female

DRUGS (7)
  1. CELLCEPT [Suspect]
     Indication: PRODUCT USED FOR UNKNOWN INDICATION
     Route: 065
  2. ENBREL [Suspect]
     Indication: PRODUCT USED FOR UNKNOWN INDICATION
     Dosage: THERAPY DURATION: 1.0 DAY
     Route: 065
  3. ENBREL [Suspect]
     Route: 065
  4. PROGRAF [Suspect]
     Indication: PRODUCT USED FOR UNKNOWN INDICATION
     Route: 065
  5. PROGRAF [Suspect]
     Route: 048
  6. RAPAMUNE [Suspect]
     Indication: PRODUCT USED FOR UNKNOWN INDICATION
     Route: 065
  7. ZENAPAX [Suspect]
     Indication: PRODUCT USED FOR UNKNOWN INDICATION
     Dosage: 5MG/ML
     Route: 065

REACTIONS (3)
  - Alopecia [Unknown]
  - Transplant dysfunction [Unknown]
  - Pneumonia [Unknown]
